FAERS Safety Report 10179271 (Version 1)
Quarter: 2014Q2

REPORT INFORMATION
  Report Type: Spontaneous
  Country: US (occurrence: None)
  Receive Date: 20140416
  Receipt Date: 20140416
  Transmission Date: 20141212
  Serious: Yes (Other)
  Sender: FDA-Public Use
  Company Number: 163-POMAL-13122916

PATIENT
  Age: 44 Year
  Sex: Female

DRUGS (9)
  1. POMALYST [Suspect]
     Indication: PLASMA CELL MYELOMA
     Dosage: 1 IN 1 D
     Route: 048
     Dates: start: 20131030, end: 20131202
  2. DEXAMETHASONE [Concomitant]
  3. ACYCLOVIR (ACICLOVIR) (ACICLOVIR) [Concomitant]
  4. DOCUSATE SODIUM [Concomitant]
  5. CITRACAL PLUS (CALCIUM CITRATE W/COLECALCIFEROL) [Concomitant]
  6. HYDROCHLOROTHIAZIDE [Concomitant]
  7. CENTRUM [Concomitant]
  8. METOPROLOL SUCCINATE (METOPROLOL SUCCINATE) [Concomitant]
  9. HYDROXYZINE HCL (HYDROXYZINE HYDROCHLORIDE) [Concomitant]

REACTIONS (2)
  - Bronchitis [None]
  - Drug dose omission [None]
